FAERS Safety Report 21183186 (Version 2)
Quarter: 2022Q4

REPORT INFORMATION
  Report Type: Spontaneous
  Country: US (occurrence: US)
  Receive Date: 20220808
  Receipt Date: 20221017
  Transmission Date: 20230112
  Serious: Yes (Other)
  Sender: FDA-Public Use
  Company Number: US-BRISTOL-MYERS SQUIBB COMPANY-2022-085888

PATIENT
  Age: 81 Year
  Sex: Female
  Weight: 59.7 kg

DRUGS (10)
  1. REVLIMID [Suspect]
     Active Substance: LENALIDOMIDE
     Indication: Plasma cell myeloma
     Route: 048
     Dates: start: 2017
  2. REVLIMID [Suspect]
     Active Substance: LENALIDOMIDE
     Dosage: STARTED ON 14-FEB-2022
     Route: 048
     Dates: end: 20220624
  3. REVLIMID [Suspect]
     Active Substance: LENALIDOMIDE
     Dosage: DAYS 1-21 OUT OF A 28-DAY CYCLE
     Route: 048
  4. REVLIMID [Suspect]
     Active Substance: LENALIDOMIDE
     Dosage: STARTED ON 10-MAY-2022?DAYS 1 THROUGH 21
     Route: 065
     Dates: end: 20220624
  5. BORTEZOMIB [Concomitant]
     Active Substance: BORTEZOMIB
     Indication: Plasma cell myeloma
     Route: 065
  6. DEXAMETHASONE [Concomitant]
     Active Substance: DEXAMETHASONE
     Indication: Plasma cell myeloma
     Route: 065
  7. ZOLEDRONIC ACID [Concomitant]
     Active Substance: ZOLEDRONIC ACID
     Indication: Plasma cell myeloma
     Route: 065
  8. DENOSUMAB [Concomitant]
     Active Substance: DENOSUMAB
     Indication: Plasma cell myeloma
     Route: 065
  9. ERYTHROPOIETIN [Concomitant]
     Active Substance: ERYTHROPOIETIN
     Indication: Product used for unknown indication
  10. ASPIRIN [Concomitant]
     Active Substance: ASPIRIN
     Indication: Product used for unknown indication
     Route: 065

REACTIONS (17)
  - Oral pain [Recovered/Resolved]
  - Fatigue [Unknown]
  - Irritable bowel syndrome [Unknown]
  - Amnesia [Unknown]
  - Nephropathy [Recovering/Resolving]
  - Asthenia [Unknown]
  - Thrombocytopenia [Unknown]
  - Intervertebral disc degeneration [Unknown]
  - Post herpetic neuralgia [Unknown]
  - Osteoarthritis [Unknown]
  - Presbyacusis [Unknown]
  - Memory impairment [Unknown]
  - Bipolar disorder [Unknown]
  - Hypertension [Unknown]
  - Hypothyroidism [Unknown]
  - Chronic obstructive pulmonary disease [Unknown]
  - Off label use [Unknown]

NARRATIVE: CASE EVENT DATE: 20211128
